FAERS Safety Report 10593489 (Version 2)
Quarter: 2015Q1

REPORT INFORMATION
  Report Type: Spontaneous
  Country: US (occurrence: US)
  Receive Date: 20141119
  Receipt Date: 20150203
  Transmission Date: 20150720
  Serious: No
  Sender: FDA-Public Use
  Company Number: US-TEVA-523593USA

PATIENT
  Age: 19 Year
  Sex: Female
  Weight: 73.55 kg

DRUGS (2)
  1. PARAGARD T 380A [Suspect]
     Active Substance: COPPER
     Indication: CONTRACEPTION
     Route: 015
     Dates: start: 20141002, end: 20141111
  2. PRENATAL VITAMINS [Concomitant]
     Active Substance: VITAMINS
     Indication: SUPPLEMENTATION THERAPY

REACTIONS (6)
  - Vaginal haemorrhage [Recovered/Resolved]
  - Exposure during breast feeding [Unknown]
  - Back pain [Unknown]
  - Pelvic pain [Recovered/Resolved]
  - Dyspareunia [Recovered/Resolved]
  - Pain [Recovered/Resolved]

NARRATIVE: CASE EVENT DATE: 20141002
